FAERS Safety Report 14553528 (Version 1)
Quarter: 2018Q1

REPORT INFORMATION
  Report Type: Spontaneous
  Country: DZ (occurrence: DZ)
  Receive Date: 20180220
  Receipt Date: 20180220
  Transmission Date: 20180509
  Serious: Yes (Hospitalization)
  Sender: FDA-Public Use
  Company Number: DZ-BIOVITRUM-2018DZ0089

PATIENT
  Sex: Female
  Weight: 19 kg

DRUGS (1)
  1. ORFADIN [Suspect]
     Active Substance: NITISINONE
     Indication: TYROSINAEMIA
     Dates: start: 20121023

REACTIONS (2)
  - Drug dose omission [Recovered/Resolved]
  - Vomiting [Recovered/Resolved]
